FAERS Safety Report 16733277 (Version 3)
Quarter: 2019Q3

REPORT INFORMATION
  Report Type: Report from Study
  Country: None (occurrence: US)
  Receive Date: 20190823
  Receipt Date: 20190920
  Transmission Date: 20191005
  Serious: Yes (Hospitalization, Other)
  Sender: FDA-Public Use
  Company Number: US-ABBVIE-19K-163-2896829-00

PATIENT
  Age: 71 Year
  Sex: Male
  Weight: 73.09 kg

DRUGS (3)
  1. METHOTREXATE. [Concomitant]
     Active Substance: METHOTREXATE
     Indication: RHEUMATOID ARTHRITIS
  2. PREDNISONE. [Concomitant]
     Active Substance: PREDNISONE
     Indication: RHEUMATOID ARTHRITIS
  3. HUMIRA [Suspect]
     Active Substance: ADALIMUMAB
     Indication: RHEUMATOID ARTHRITIS
     Dosage: CITRATE FREE
     Route: 058
     Dates: start: 201907

REACTIONS (7)
  - Blood pressure increased [Recovered/Resolved]
  - Coronary artery occlusion [Recovering/Resolving]
  - Device leakage [Unknown]
  - Emotional distress [Unknown]
  - Wrong technique in product usage process [Unknown]
  - Procedural pain [Unknown]
  - Post procedural myocardial infarction [Unknown]

NARRATIVE: CASE EVENT DATE: 2019
